FAERS Safety Report 22144237 (Version 2)
Quarter: 2023Q2

REPORT INFORMATION
  Report Type: Report from Study
  Country: FR (occurrence: FR)
  Receive Date: 20230328
  Receipt Date: 20230403
  Transmission Date: 20230722
  Serious: Yes (Hospitalization)
  Sender: FDA-Public Use
  Company Number: FR-BRISTOL-MYERS SQUIBB COMPANY-2022-117911

PATIENT
  Age: 66 Year
  Sex: Male
  Weight: 78 kg

DRUGS (8)
  1. DOCETAXEL [Suspect]
     Active Substance: DOCETAXEL
     Indication: Hormone-refractory prostate cancer
     Dates: start: 20220425, end: 20220916
  2. PREDNISONE [Concomitant]
     Active Substance: PREDNISONE
     Indication: Hormone-refractory prostate cancer
     Dosage: PRIOR TO THE EVENT ONSET, THE PATIENT RECEIVED HIS MOST RECENT DOSE ON 14-SEP-2022.
     Dates: start: 20220428, end: 20220511
  3. PREDNISONE [Concomitant]
     Active Substance: PREDNISONE
     Indication: Prophylaxis
     Dates: start: 20220828, end: 20220914
  4. PREDNISONE [Concomitant]
     Active Substance: PREDNISONE
     Dates: start: 2019
  5. ALFUZOSIN [Concomitant]
     Active Substance: ALFUZOSIN
     Indication: Prophylaxis
     Route: 048
     Dates: start: 2020
  6. LEVOTHYROXINE [Concomitant]
     Active Substance: LEVOTHYROXINE
     Indication: Hypothyroidism
     Route: 048
     Dates: start: 20220919, end: 20221014
  7. DENOSUMAB [Concomitant]
     Active Substance: DENOSUMAB
     Indication: Prophylaxis
     Route: 058
     Dates: start: 2021
  8. CACIT VIT D3 [Concomitant]
     Indication: Prophylaxis
     Dosage: 2  UNITS NOS
     Route: 048
     Dates: start: 2021

REACTIONS (1)
  - Lung disorder [Recovered/Resolved]

NARRATIVE: CASE EVENT DATE: 20221006
